FAERS Safety Report 4455595-9 (Version None)
Quarter: 2004Q3

REPORT INFORMATION
  Report Type: 
  Country: None (occurrence: None)
  Receive Date: 20040922
  Receipt Date: 20040917
  Transmission Date: 20050211
  Serious: Yes (Life-Threatening, Hospitalization, Other)
  Sender: FDA-Public Use
  Company Number: 200412115DE

PATIENT
  Age: 55 Year
  Sex: Male
  Weight: 61 kg

DRUGS (8)
  1. LANTUS [Suspect]
     Indication: DIABETES MELLITUS INSULIN-DEPENDENT
     Dates: start: 20000101
  2. HUMALOG [Suspect]
     Indication: DIABETES MELLITUS INSULIN-DEPENDENT
     Dates: start: 19960601
  3. VELASULIN [Concomitant]
     Dates: start: 19870901, end: 19960601
  4. INSULATARD NPH HUMAN [Concomitant]
     Dates: start: 19870901, end: 19920701
  5. INSULIN SEMILENTE [Concomitant]
     Dates: start: 19920701, end: 20000101
  6. PROSTAGUTT [Concomitant]
  7. DEXIUM [Concomitant]
  8. GUMBARAL [Concomitant]

REACTIONS (1)
  - METASTASES TO LIVER [None]
